FAERS Safety Report 4538819-9 (Version None)
Quarter: 2004Q4

REPORT INFORMATION
  Report Type: 
  Country: None (occurrence: None)
  Receive Date: 20041222
  Receipt Date: 20041202
  Transmission Date: 20050328
  Serious: Yes (Hospitalization)
  Sender: FDA-Public Use
  Company Number: US_0412108883

PATIENT
  Sex: Female
  Weight: 82 kg

DRUGS (25)
  1. HUMULIN 70/30 [Suspect]
     Dosage: 61 U DAY
  2. ALDACTONE [Concomitant]
  3. DIOVAN HCT [Concomitant]
  4. IMURAN [Concomitant]
  5. MIACALCIN [Concomitant]
  6. PREDNISONE [Concomitant]
  7. PRILOSEC (OMEPRAZOLE RATIOPHARM) [Concomitant]
  8. SYNTHROID [Concomitant]
  9. BIOTENE (GLUCOSE OXIDASE) [Concomitant]
  10. MYCELEX [Concomitant]
  11. MILK THISTLE (SILYBUM MARIANUM) [Concomitant]
  12. ALUMINUM HYDROXIDE AND MAGNESIUM TRISILICATE [Concomitant]
  13. TUMS (CALCIUM CARBONATE) [Concomitant]
  14. PEPTO-BISMOL (BISMUTH SUBSALICYLATE) [Concomitant]
  15. IMODIUM [Concomitant]
  16. LORAZEPAM [Concomitant]
  17. VISINE (TETRYZOLINE HYDROCHLORIDE) [Concomitant]
  18. LEVAQUIN [Concomitant]
  19. CYSTEX [Concomitant]
  20. PROMETHAZINE VC PLAIN [Concomitant]
  21. DARVON [Concomitant]
  22. MOTRIN [Concomitant]
  23. TRAMADOL HCL [Concomitant]
  24. LORATADINE [Concomitant]
  25. METAMUCIL (PLANTAGO OVATA) [Concomitant]

REACTIONS (9)
  - BLOOD GLUCOSE INCREASED [None]
  - CATARACT OPERATION [None]
  - FIBULA FRACTURE [None]
  - GALLBLADDER OPERATION [None]
  - HYSTERECTOMY [None]
  - TIBIA FRACTURE [None]
  - UMBILICAL HERNIA REPAIR [None]
  - WEIGHT DECREASED [None]
  - WEIGHT LOSS DIET [None]
